FAERS Safety Report 4520198-4 (Version None)
Quarter: 2004Q4

REPORT INFORMATION
  Report Type: 
  Country: None (occurrence: None)
  Receive Date: 20041027
  Receipt Date: 20040812
  Transmission Date: 20050328
  Serious: Yes (Death)
  Sender: FDA-Public Use
  Company Number: 04P-163-0270774-00

PATIENT
  Age: 78 Year
  Sex: Female

DRUGS (8)
  1. SYNTHROID [Suspect]
  2. ZESTORETIC [Concomitant]
  3. OMEPRAZOLE [Concomitant]
  4. AMLODIPINE BESYLATE [Concomitant]
  5. AMITRIPTYLINE HCL [Concomitant]
  6. CONJUGATED ESTROGEN [Concomitant]
  7. TRAMADOL HCL [Concomitant]
  8. PRINZIDE [Concomitant]

REACTIONS (1)
  - DEATH [None]
